FAERS Safety Report 8016595-5 (Version None)
Quarter: 2011Q4

REPORT INFORMATION
  Report Type: 
  Country: None (occurrence: None)
  Receive Date: 20111230
  Receipt Date: 20111221
  Transmission Date: 20120403
  Serious: Yes (Other)
  Sender: FDA-Public Use
  Company Number: US-ASTRAZENECA-2011SE66672

PATIENT
  Age: 61 Year
  Sex: Male

DRUGS (3)
  1. CRESTOR [Suspect]
     Route: 048
  2. NEXIUM [Suspect]
     Route: 048
  3. LISINOPRIL [Suspect]
     Route: 048

REACTIONS (2)
  - COUGH [None]
  - MYOCARDIAL INFARCTION [None]
